FAERS Safety Report 14336557 (Version 1)
Quarter: 2017Q4

REPORT INFORMATION
  Report Type: Spontaneous
  Country: CN (occurrence: CN)
  Receive Date: 20171229
  Receipt Date: 20171229
  Transmission Date: 20180321
  Serious: Yes (Hospitalization)
  Sender: FDA-Public Use
  Company Number: CN-BAYER-2017-245588

PATIENT
  Age: 80 Year
  Sex: Male

DRUGS (1)
  1. GLUCOBAY [Suspect]
     Active Substance: ACARBOSE
     Dosage: 50 MG, TID
     Route: 048

REACTIONS (3)
  - Hospitalisation [None]
  - Flatulence [None]
  - Anal incontinence [None]

NARRATIVE: CASE EVENT DATE: 2016
